FAERS Safety Report 6817679-7 (Version None)
Quarter: 2010Q3

REPORT INFORMATION
  Report Type: 
  Country: None (occurrence: None)
  Receive Date: 20100706
  Receipt Date: 20100624
  Transmission Date: 20110219
  Serious: Yes (Hospitalization, Other)
  Sender: FDA-Public Use
  Company Number: JP-PFIZER INC-2010074105

PATIENT
  Age: 60 Year
  Sex: Female

DRUGS (2)
  1. AMLODIPINE BESYLATE [Suspect]
     Indication: ESSENTIAL HYPERTENSION
     Dosage: 5 MG, DAILY
     Route: 048
     Dates: start: 20100422, end: 20100605
  2. YOKUKAN-SAN [Concomitant]
     Indication: INSOMNIA
     Dosage: 5 G, 1X/DAY
     Route: 048
     Dates: start: 20100406, end: 20100605

REACTIONS (1)
  - CEREBRAL INFARCTION [None]
